FAERS Safety Report 15236186 (Version 3)
Quarter: 2018Q3

REPORT INFORMATION
  Report Type: Report from Study
  Country: DE (occurrence: DE)
  Receive Date: 20180803
  Receipt Date: 20180917
  Transmission Date: 20181010
  Serious: Yes (Other)
  Sender: FDA-Public Use
  Company Number: DE-ROCHE-2161958

PATIENT
  Age: 43 Year
  Sex: Male
  Weight: 71 kg

DRUGS (13)
  1. FINGOLIMOD. [Concomitant]
     Active Substance: FINGOLIMOD
     Route: 065
     Dates: start: 20150710, end: 20180227
  2. FAMPYRA [Concomitant]
     Active Substance: DALFAMPRIDINE
     Dosage: INDICATION: ABILITY TO WALK
     Route: 048
     Dates: start: 20120130
  3. GABAPENTIN. [Concomitant]
     Active Substance: GABAPENTIN
     Indication: NEURALGIA
     Route: 048
     Dates: start: 20141121
  4. MITOXANTRONE [Concomitant]
     Active Substance: MITOXANTRONE HYDROCHLORIDE
     Route: 065
     Dates: start: 20050101, end: 20090531
  5. PREDNISOLUT [Concomitant]
     Active Substance: PREDNISOLONE
     Indication: PREMEDICATION
     Route: 042
     Dates: start: 20180518
  6. FINGOLIMOD. [Concomitant]
     Active Substance: FINGOLIMOD
     Route: 065
     Dates: start: 20150710, end: 20180227
  7. INTERFERON BETA 1A [Concomitant]
     Active Substance: INTERFERON BETA-1A
     Route: 058
     Dates: start: 20020101, end: 20051231
  8. INTERFERON BETA 1A [Concomitant]
     Active Substance: INTERFERON BETA-1A
     Route: 030
     Dates: start: 20010123, end: 20111231
  9. OCRELIZUMAB. [Suspect]
     Active Substance: OCRELIZUMAB
     Dosage: MOST RECENT DOSE DATE: 01/JUN/2018
     Route: 042
     Dates: start: 20180601
  10. FENISTIL (GERMANY) [Concomitant]
     Indication: PREMEDICATION
     Route: 042
     Dates: start: 20180518
  11. OCRELIZUMAB. [Suspect]
     Active Substance: OCRELIZUMAB
     Indication: MULTIPLE SCLEROSIS
     Route: 042
     Dates: start: 20180518, end: 20180518
  12. LOSARTAN. [Concomitant]
     Active Substance: LOSARTAN
     Indication: CARDIAC FAILURE
     Route: 048
     Dates: start: 20180601
  13. MITOXANTRONE [Concomitant]
     Active Substance: MITOXANTRONE HYDROCHLORIDE
     Route: 065
     Dates: start: 20050101, end: 20090531

REACTIONS (1)
  - Psoriasis [Not Recovered/Not Resolved]

NARRATIVE: CASE EVENT DATE: 20180726
